FAERS Safety Report 5013572-3 (Version None)
Quarter: 2006Q2

REPORT INFORMATION
  Report Type: 
  Country: None (occurrence: None)
  Receive Date: 20060530
  Receipt Date: 20060523
  Transmission Date: 20061013
  Serious: Yes (Hospitalization)
  Sender: FDA-Public Use
  Company Number: 2006PK01140

PATIENT
  Age: 66 Year
  Sex: Male
  Weight: 75.2 kg

DRUGS (16)
  1. SEROQUEL [Suspect]
     Route: 048
     Dates: start: 20060305, end: 20060306
  2. SEROQUEL [Suspect]
     Route: 048
     Dates: start: 20060307
  3. SEROQUEL [Suspect]
     Route: 048
     Dates: start: 20060308
  4. SEROQUEL [Suspect]
     Route: 048
     Dates: start: 20060309
  5. SEROQUEL [Suspect]
     Route: 048
     Dates: start: 20060310, end: 20060319
  6. SEROQUEL [Suspect]
     Route: 048
     Dates: start: 20060320, end: 20060324
  7. SEROQUEL [Suspect]
     Route: 048
     Dates: start: 20060325, end: 20060326
  8. SEROQUEL [Suspect]
     Route: 048
     Dates: start: 20060327
  9. DIPIPERON [Suspect]
     Dates: start: 20060303, end: 20060309
  10. DIPIPERON [Suspect]
     Dates: start: 20060316, end: 20060323
  11. NEURONTIN [Concomitant]
     Route: 048
     Dates: start: 20060303
  12. SERESTA [Concomitant]
     Route: 048
     Dates: start: 20060303, end: 20060323
  13. SERESTA [Concomitant]
     Route: 048
     Dates: start: 20060324, end: 20060331
  14. PRADIF [Concomitant]
     Route: 048
     Dates: start: 20060303
  15. TORSEMIDE [Concomitant]
     Route: 048
     Dates: start: 20060322, end: 20060330
  16. TORSEMIDE [Concomitant]
     Route: 048
     Dates: start: 20060331, end: 20060410

REACTIONS (1)
  - PLEUROTHOTONUS [None]
